FAERS Safety Report 7272856-9 (Version None)
Quarter: 2011Q1

REPORT INFORMATION
  Report Type: 
  Country: None (occurrence: None)
  Receive Date: 20110126
  Receipt Date: 20110112
  Transmission Date: 20110831
  Serious: Yes (Other)
  Sender: FDA-Public Use
  Company Number: 013535

PATIENT
  Sex: Female

DRUGS (2)
  1. MACUGEN [Suspect]
     Indication: MACULAR DEGENERATION
     Dosage: 0.3 MG, IN THE RIGHT EYE;
     Dates: start: 20071218
  2. MACUGEN [Suspect]
     Indication: MACULAR DEGENERATION
     Dosage: 0.3 MG, IN THE RIGHT EYE;
     Dates: start: 20080411

REACTIONS (1)
  - VISUAL ACUITY REDUCED [None]
